FAERS Safety Report 13180624 (Version 1)
Quarter: 2017Q1

REPORT INFORMATION
  Report Type: Spontaneous
  Country: US (occurrence: US)
  Receive Date: 20170202
  Receipt Date: 20170202
  Transmission Date: 20170428
  Serious: Yes (Death, Hospitalization, Other)
  Sender: FDA-Public Use
  Company Number: US-PFIZER INC-2017026782

PATIENT
  Age: 40 Year
  Sex: Male

DRUGS (3)
  1. DEXTROMETHORPHAN HYDROBROMIDE. [Suspect]
     Active Substance: DEXTROMETHORPHAN HYDROBROMIDE
     Dosage: UNK
     Route: 048
  2. FLECAINIDE [Suspect]
     Active Substance: FLECAINIDE
     Dosage: UNK
     Route: 048
  3. CHLORPHENIRAMINE. [Suspect]
     Active Substance: CHLORPHENIRAMINE
     Dosage: UNK
     Route: 048

REACTIONS (4)
  - Intentional overdose [Fatal]
  - Toxicity to various agents [Fatal]
  - Completed suicide [Fatal]
  - Cardiac arrest [Fatal]

NARRATIVE: CASE EVENT DATE: 2015
